FAERS Safety Report 17417126 (Version 1)
Quarter: 2020Q1

REPORT INFORMATION
  Report Type: Spontaneous
  Country: US (occurrence: US)
  Receive Date: 20200214
  Receipt Date: 20200214
  Transmission Date: 20200409
  Serious: Yes (Hospitalization, Other)
  Sender: FDA-Public Use
  Company Number: US-BIOVITRUM-2020US0766

PATIENT
  Sex: Female

DRUGS (6)
  1. KINERET [Suspect]
     Active Substance: ANAKINRA
     Route: 058
     Dates: start: 20200206
  2. PROGRAS [Concomitant]
  3. LORAZEPAM. [Concomitant]
     Active Substance: LORAZEPAM
  4. LEVOTHYROXINE. [Concomitant]
     Active Substance: LEVOTHYROXINE
  5. KINERET [Suspect]
     Active Substance: ANAKINRA
     Indication: AUTOIMMUNE DISORDER
     Route: 058
     Dates: start: 201912
  6. PREDNISONE. [Concomitant]
     Active Substance: PREDNISONE

REACTIONS (8)
  - Off label use [Unknown]
  - Nausea [Unknown]
  - Bone pain [Unknown]
  - Lethargy [Unknown]
  - Headache [Unknown]
  - Influenza [Unknown]
  - Sepsis [Unknown]
  - Fatigue [Unknown]
